FAERS Safety Report 9814598 (Version 1)
Quarter: 2014Q1

REPORT INFORMATION
  Report Type: Report from Study
  Country: CA (occurrence: CA)
  Receive Date: 20140113
  Receipt Date: 20140113
  Transmission Date: 20141002
  Serious: Yes (Hospitalization, Other)
  Sender: FDA-Public Use
  Company Number: PHHY2014CA003312

PATIENT
  Age: 8 Year
  Sex: Female

DRUGS (1)
  1. TOBI [Suspect]
     Indication: CYSTIC FIBROSIS
     Dosage: UNK UKN, UNK
     Route: 055

REACTIONS (1)
  - Viral infection [Unknown]
